FAERS Safety Report 6553044-8 (Version None)
Quarter: 2010Q1

REPORT INFORMATION
  Report Type: 
  Country: None (occurrence: None)
  Receive Date: 20100122
  Receipt Date: 20100113
  Transmission Date: 20100710
  Serious: No
  Sender: FDA-Public Use
  Company Number: 20107967

PATIENT
  Sex: Male

DRUGS (1)
  1. LIORESAL [Suspect]
     Indication: MUSCLE SPASTICITY
     Dosage: 138.19 MCG, DAILY, INTRATHECAL
     Route: 037

REACTIONS (3)
  - IMPLANT SITE EROSION [None]
  - INJURY [None]
  - WOUND DEHISCENCE [None]
